FAERS Safety Report 19948758 (Version 1)
Quarter: 2021Q4

REPORT INFORMATION
  Report Type: Spontaneous
  Country: US (occurrence: US)
  Receive Date: 20211012
  Receipt Date: 20211012
  Transmission Date: 20220303
  Serious: No
  Sender: FDA-Public Use
  Company Number: US-BAXTER-2021BAX031603

PATIENT
  Sex: Male

DRUGS (1)
  1. SODIUM CHLORIDE [Suspect]
     Active Substance: SODIUM CHLORIDE
     Indication: Drug therapy
     Route: 065

REACTIONS (3)
  - Blepharospasm [Recovered/Resolved]
  - Eye irritation [Recovered/Resolved]
  - Condition aggravated [Recovered/Resolved]
